FAERS Safety Report 11107432 (Version 1)
Quarter: 2015Q2

REPORT INFORMATION
  Report Type: Spontaneous
  Country: CO (occurrence: CO)
  Receive Date: 20150512
  Receipt Date: 20150512
  Transmission Date: 20150821
  Serious: Yes (Death)
  Sender: FDA-Public Use
  Company Number: CO-ASTELLAS-2015US014904

PATIENT
  Age: 36 Year
  Sex: Female

DRUGS (1)
  1. ADVAGRAF [Suspect]
     Active Substance: TACROLIMUS
     Indication: RENAL TRANSPLANT
     Dosage: 8 MG, ONCE DAILY (IN 24 HOUR)
     Route: 048
     Dates: start: 20141015, end: 20150119

REACTIONS (1)
  - Systemic lupus erythematosus [Fatal]

NARRATIVE: CASE EVENT DATE: 20150119
